FAERS Safety Report 22069702 (Version 1)
Quarter: 2023Q1

REPORT INFORMATION
  Report Type: Spontaneous
  Country: FR (occurrence: FR)
  Receive Date: 20230307
  Receipt Date: 20230307
  Transmission Date: 20230417
  Serious: Yes (Hospitalization)
  Sender: FDA-Public Use
  Company Number: None

PATIENT
  Age: 76 Year
  Sex: Male

DRUGS (4)
  1. DAPTOMYCIN [Suspect]
     Active Substance: DAPTOMYCIN
     Indication: Device related infection
     Dosage: 1250 MG, 1X/DAY
     Route: 042
     Dates: start: 20221209, end: 20221213
  2. DAPTOMYCIN [Suspect]
     Active Substance: DAPTOMYCIN
     Dosage: 1250 MG, 1X/DAY
     Route: 042
     Dates: start: 20221222, end: 20221224
  3. CEFOTAXIME SODIUM [Suspect]
     Active Substance: CEFOTAXIME SODIUM
     Indication: Device related infection
     Dosage: 9 G, 1X/DAY
     Route: 042
     Dates: start: 20221209, end: 20221213
  4. CEFOTAXIME SODIUM [Suspect]
     Active Substance: CEFOTAXIME SODIUM
     Dosage: 9 G, 1X/DAY
     Route: 042
     Dates: start: 20221222, end: 20221224

REACTIONS (1)
  - Interstitial lung disease [Recovering/Resolving]

NARRATIVE: CASE EVENT DATE: 20221224
